FAERS Safety Report 4716466-3 (Version None)
Quarter: 2005Q3

REPORT INFORMATION
  Report Type: 
  Country: None (occurrence: None)
  Receive Date: 20050714
  Receipt Date: 20050701
  Transmission Date: 20060218
  Serious: Yes (Hospitalization)
  Sender: FDA-Public Use
  Company Number: 2005097144

PATIENT
  Age: 76 Year
  Sex: Male

DRUGS (4)
  1. ESTRACYT (ESTRAMUSTINE PHOSPHATE SODIUM) [Suspect]
     Indication: PROSTATE CANCER
     Dosage: 280 MG, ORAL
     Route: 048
     Dates: start: 20040720, end: 20050505
  2. ETHINYLESTRADIOL (ETINYLESTRADIOL) [Suspect]
     Indication: PROSTATE CANCER
     Dosage: ORAL
     Route: 048
     Dates: start: 20040720, end: 20050505
  3. MELILOT (MELILOT0 [Concomitant]
  4. BIOFLAVONOIDS (BIOFLAVONOIDS0 [Concomitant]

REACTIONS (1)
  - DYSLALIA [None]
